FAERS Safety Report 6388318-7 (Version None)
Quarter: 2009Q4

REPORT INFORMATION
  Report Type: 
  Country: None (occurrence: None)
  Receive Date: 20091005
  Receipt Date: 20090930
  Transmission Date: 20100525
  Serious: Yes (Death, Hospitalization)
  Sender: FDA-Public Use
  Company Number: US-CELGENEUS-163-50794-09091333

PATIENT
  Sex: Male
  Weight: 104.1 kg

DRUGS (25)
  1. VIDAZA [Suspect]
     Route: 058
     Dates: start: 20090520, end: 20090526
  2. VIDAZA [Suspect]
     Route: 058
     Dates: start: 20081229, end: 20090104
  3. PLAVIX [Suspect]
     Indication: DRUG USE FOR UNKNOWN INDICATION
     Route: 065
  4. ATORVASTATIN [Concomitant]
     Route: 048
  5. GLIPIZIDE [Concomitant]
     Route: 065
  6. FOLIC ACID [Concomitant]
     Indication: SUPPLEMENTATION THERAPY
     Route: 065
  7. MULTI-VITAMINS [Concomitant]
     Indication: SUPPLEMENTATION THERAPY
     Route: 065
  8. COMBIVENT [Concomitant]
     Dosage: 2 PUFFS
     Route: 065
  9. UBIQUINONE [Concomitant]
     Indication: SUPPLEMENTATION THERAPY
     Route: 048
  10. DARBEPOSETIN ALFA [Concomitant]
     Route: 058
  11. LOSARTAN [Concomitant]
     Indication: HYPERTENSION
     Route: 048
  12. MECLIZINE [Concomitant]
     Indication: NAUSEA
     Route: 048
  13. NEXIUM [Concomitant]
     Indication: GASTRITIS
     Route: 048
     Dates: start: 20090122
  14. METAMUCIL [Concomitant]
     Indication: SUPPLEMENTATION THERAPY
     Route: 065
  15. ALLOPURINOL [Concomitant]
     Route: 048
  16. NITROGLYCERIN [Concomitant]
     Indication: ANGINA PECTORIS
     Route: 065
  17. HYDROXYZINE [Concomitant]
     Indication: ANXIETY
     Route: 065
  18. LASIX [Concomitant]
     Indication: HYPERTENSION
     Route: 065
  19. BYSTOLIC [Concomitant]
     Indication: HYPERTENSION
     Route: 065
  20. TRAMADOL HCL [Concomitant]
     Indication: PAIN
     Route: 065
  21. FINASTERIDE [Concomitant]
     Route: 065
  22. URSODIOL [Concomitant]
     Route: 065
  23. MIRALAX [Concomitant]
     Indication: CONSTIPATION
     Dosage: 9 DOSES
     Route: 065
  24. SODIUM PHOSPHATES [Concomitant]
     Indication: CONSTIPATION
     Route: 054
  25. MILK OF MAGNESIA TAB [Concomitant]
     Indication: CONSTIPATION
     Route: 065

REACTIONS (2)
  - DEATH [None]
  - PANCYTOPENIA [None]
